FAERS Safety Report 15719520 (Version 1)
Quarter: 2018Q4

REPORT INFORMATION
  Report Type: Spontaneous
  Country: US (occurrence: US)
  Receive Date: 20181213
  Receipt Date: 20181213
  Transmission Date: 20190205
  Serious: No
  Sender: FDA-Public Use
  Company Number: US-SA-2018SA327693

PATIENT
  Sex: Female

DRUGS (1)
  1. ICY HOT XL BACK AND LARGE AREAS [Suspect]
     Active Substance: MENTHOL
     Dosage: UNK

REACTIONS (2)
  - Pain [Unknown]
  - Complication of drug delivery system removal [Unknown]
